FAERS Safety Report 23791092 (Version 1)
Quarter: 2024Q2

REPORT INFORMATION
  Report Type: Spontaneous
  Country: US (occurrence: US)
  Receive Date: 20240428
  Receipt Date: 20240428
  Transmission Date: 20240716
  Serious: Yes (Other)
  Sender: FDA-Public Use
  Company Number: US-GLENMARK PHARMACEUTICALS-2024GMK090388

PATIENT

DRUGS (5)
  1. ESTRADIOL [Suspect]
     Active Substance: ESTRADIOL
     Indication: Primary hypogonadism
     Dosage: UNK
     Route: 048
  2. NORETHINDRONE [Suspect]
     Active Substance: NORETHINDRONE
     Indication: Primary hypogonadism
     Dosage: 10 MILLIGRAM
     Route: 048
  3. NORETHINDRONE [Suspect]
     Active Substance: NORETHINDRONE
     Dosage: 5 MILLIGRAM
     Route: 048
  4. ETHINYL ESTRADIOL\NORETHINDRONE ACETATE [Suspect]
     Active Substance: ETHINYL ESTRADIOL\NORETHINDRONE ACETATE
     Indication: Primary hypogonadism
     Dosage: UNK
     Route: 048
  5. CONJUGATED ESTROGENS [Suspect]
     Active Substance: ESTROGENS, CONJUGATED
     Indication: Primary hypogonadism
     Dosage: UNK
     Route: 048

REACTIONS (1)
  - Change in seizure presentation [Recovering/Resolving]
